FAERS Safety Report 9998790 (Version 2)
Quarter: 2014Q1

REPORT INFORMATION
  Report Type: Spontaneous
  Country: US (occurrence: US)
  Receive Date: 20140312
  Receipt Date: 20140326
  Transmission Date: 20141002
  Serious: No
  Sender: FDA-Public Use
  Company Number: US-BIOGENIDEC-2014BI019982

PATIENT
  Age: 33 Year
  Sex: Female

DRUGS (3)
  1. TECFIDERA [Suspect]
     Indication: MULTIPLE SCLEROSIS
     Route: 048
  2. TYLENOL [Concomitant]
  3. ZANAFLEX [Concomitant]

REACTIONS (3)
  - Adverse event [Unknown]
  - Pain in extremity [Unknown]
  - Flushing [Unknown]
